FAERS Safety Report 8060523-3 (Version None)
Quarter: 2012Q1

REPORT INFORMATION
  Report Type: 
  Country: None (occurrence: None)
  Receive Date: 20120120
  Receipt Date: 20120112
  Transmission Date: 20120608
  Serious: Yes (Other)
  Sender: FDA-Public Use
  Company Number: CHPA2012US001278

PATIENT
  Age: 61 Year
  Sex: Female

DRUGS (1)
  1. EXCEDRIN TENSION HEADACHE CAPLETS [Suspect]
     Indication: HEADACHE
     Dosage: 2 DF, ONCE OR TWICE
     Route: 048

REACTIONS (2)
  - DYSPNOEA [None]
  - MALAISE [None]
